FAERS Safety Report 8541014-X (Version None)
Quarter: 2012Q3

REPORT INFORMATION
  Report Type: 
  Country: None (occurrence: None)
  Receive Date: 20120726
  Receipt Date: 20110811
  Transmission Date: 20120928
  Serious: No
  Sender: FDA-Public Use
  Company Number: US-ASTRAZENECA-2011SE48474

PATIENT
  Age: 56 Year
  Sex: Female

DRUGS (8)
  1. SEROQUEL [Suspect]
     Indication: BIPOLAR DISORDER
     Route: 048
  2. ADVAIR DISKUS 100/50 [Concomitant]
  3. GABAPENTIN [Concomitant]
  4. HYDROCODONE MS CONTIN [Concomitant]
  5. AMBIEN [Concomitant]
  6. DIAZEPAM [Concomitant]
  7. SPIRIVA [Concomitant]
  8. VENTOLIN [Concomitant]

REACTIONS (3)
  - DRUG WITHDRAWAL SYNDROME [None]
  - DRUG DOSE OMISSION [None]
  - INSOMNIA [None]
